FAERS Safety Report 9508691 (Version 1)
Quarter: 2013Q3

REPORT INFORMATION
  Report Type: Spontaneous
  Country: US (occurrence: US)
  Receive Date: 20130909
  Receipt Date: 20130909
  Transmission Date: 20140515
  Serious: Yes (Hospitalization)
  Sender: FDA-Public Use
  Company Number: US-GLAXOSMITHKLINE-A1040623A

PATIENT
  Age: 75 Year
  Sex: Female

DRUGS (16)
  1. PROMACTA [Suspect]
     Indication: IMMUNE THROMBOCYTOPENIC PURPURA
     Dosage: 25MG PER DAY
     Route: 048
     Dates: start: 20121201
  2. PREDNISONE [Concomitant]
  3. HUMALOG [Concomitant]
  4. GENTAMICIN [Concomitant]
  5. GLIPIZIDE [Concomitant]
  6. LEVEMIR [Concomitant]
  7. FUROSEMIDE [Concomitant]
  8. PRAVASTATIN [Concomitant]
  9. METOPROLOL [Concomitant]
  10. VITAMIN D [Concomitant]
  11. HYDRALAZINE [Concomitant]
  12. GLIMEPIRIDE [Concomitant]
  13. LACTOSE [Concomitant]
  14. NEXIUM [Concomitant]
  15. TYLENOL [Concomitant]
  16. CLARITIN [Concomitant]

REACTIONS (1)
  - Cardiac operation [Unknown]
